FAERS Safety Report 5119091-8 (Version None)
Quarter: 2006Q3

REPORT INFORMATION
  Report Type: 
  Country: None (occurrence: None)
  Receive Date: 20060927
  Receipt Date: 20060915
  Transmission Date: 20061208
  Serious: Yes (Hospitalization)
  Sender: FDA-Public Use
  Company Number: 2006111125

PATIENT
  Age: 40 Year
  Sex: Male

DRUGS (3)
  1. BENADRYL ALLERGY/COLD (DIPHENHYDRAMINE, PARACETAMOL, PSEUDOEPHEDRINE) [Suspect]
     Indication: HYPERSENSITIVITY
     Dosage: ORAL
     Route: 048
     Dates: start: 20060901, end: 20060904
  2. BUPROPION HYDROCHLORIDE [Suspect]
     Indication: SMOKING CESSATION THERAPY
     Dosage: 150 MG PER DAY, ORAL
     Route: 048
     Dates: end: 20060904
  3. IBUPROFEN [Concomitant]

REACTIONS (6)
  - AGITATION [None]
  - AMNESIA [None]
  - BLOOD CREATINE PHOSPHOKINASE INCREASED [None]
  - CONVULSION [None]
  - FEELING ABNORMAL [None]
  - TONGUE BITING [None]
